FAERS Safety Report 6494829-6 (Version None)
Quarter: 2009Q4

REPORT INFORMATION
  Report Type: 
  Country: None (occurrence: None)
  Receive Date: 20091214
  Receipt Date: 20090330
  Transmission Date: 20100525
  Serious: No
  Sender: FDA-Public Use
  Company Number: US-BRISTOL-MYERS SQUIBB COMPANY-14567267

PATIENT
  Age: 65 Year
  Sex: Female

DRUGS (5)
  1. ABILIFY [Suspect]
     Indication: BIPOLAR DISORDER
     Dosage: DOSE INCREASED FROM 5 MG TO 10 MG TO 15 MG
     Dates: start: 20090201
  2. SEROQUEL [Concomitant]
  3. ROZEREM [Concomitant]
  4. KLONOPIN [Concomitant]
  5. DEPAKOTE [Concomitant]

REACTIONS (2)
  - MUSCLE TWITCHING [None]
  - VISION BLURRED [None]
